FAERS Safety Report 11783504 (Version 1)
Quarter: 2015Q4

REPORT INFORMATION
  Report Type: Report from Study
  Country: JP (occurrence: JP)
  Receive Date: 20151127
  Receipt Date: 20151127
  Transmission Date: 20160305
  Serious: Yes (Death, Hospitalization, Other)
  Sender: FDA-Public Use
  Company Number: JP-B.I. PHARMACEUTICALS,INC./RIDGEFIELD-2015-BI-37547II

PATIENT
  Age: 75 Year
  Sex: Male
  Weight: 47.5 kg

DRUGS (16)
  1. BESOFTEN [Concomitant]
     Active Substance: SODIUM ALGINATE
     Indication: DRY SKIN PROPHYLAXIS
     Route: 062
     Dates: start: 20150707
  2. PREDONINE [Concomitant]
     Active Substance: PREDNISOLONE\PREDNISOLONE ACETATE\PREDNISOLONE SODIUM SUCCINATE
     Indication: INFLAMMATION
     Dosage: 5 MG
     Route: 048
  3. IRBETAN [Concomitant]
     Active Substance: IRBESARTAN
     Indication: BLOOD PRESSURE MANAGEMENT
     Dosage: 200 MG
     Route: 048
  4. REBAMIPIDE [Concomitant]
     Active Substance: REBAMIPIDE
     Indication: GASTRITIS
     Dosage: 300 MG
     Route: 048
     Dates: start: 20150707
  5. AMIODARONE HYDROCHLORIDE. [Suspect]
     Active Substance: AMIODARONE HYDROCHLORIDE
     Indication: ARRHYTHMIA
     Dosage: 100 MG
     Route: 048
     Dates: start: 20150526
  6. TSUMURA DAIKENCHUTO EXTRACT GRANULES FOR ETHICAL USE [Concomitant]
     Active Substance: HERBALS
     Indication: PRODUCT USED FOR UNKNOWN INDICATION
     Dosage: 7.5 MG
     Route: 048
     Dates: start: 20150526
  7. URSODEOXYCHOLIC ACID [Concomitant]
     Active Substance: URSODIOL
     Indication: DYSPEPSIA
     Dosage: 300 MG
     Route: 048
     Dates: start: 20150526
  8. NEORAL [Concomitant]
     Active Substance: CYCLOSPORINE
     Indication: IMMUNOSUPPRESSION
     Dosage: 20 MG
     Route: 048
     Dates: start: 20150526
  9. PREDNISOLONE. [Concomitant]
     Active Substance: PREDNISOLONE
     Indication: INFLAMMATION
     Dosage: 3 MG
     Route: 048
  10. HARNAL [Concomitant]
     Active Substance: TAMSULOSIN HYDROCHLORIDE
     Indication: DYSURIA
     Dosage: 0.2 MG
     Route: 048
  11. PRAZAXA [Suspect]
     Active Substance: DABIGATRAN ETEXILATE MESYLATE
     Indication: ANTICOAGULANT THERAPY
     Dosage: 220 MG
     Route: 048
     Dates: start: 20150511, end: 20150707
  12. EVIPROSTAT [Concomitant]
     Active Substance: CHIMAPHILA UMBELLATA\MANGANESE CHLORIDE\POPULUS TREMULOIDES\SODIUM TAUROCHOLATE
     Indication: BENIGN PROSTATIC HYPERPLASIA
     Dosage: 1 ANZ
     Route: 048
     Dates: start: 20150526
  13. MAGLAX [Concomitant]
     Active Substance: MAGNESIUM OXIDE
     Indication: DIARRHOEA
     Dosage: 500 MG
     Route: 048
     Dates: start: 20150526
  14. NEXIUM [Concomitant]
     Active Substance: ESOMEPRAZOLE MAGNESIUM
     Indication: GASTRIC ULCER
     Dosage: 20 MG
     Route: 048
     Dates: start: 20150526
  15. BIOFERMIN [Concomitant]
     Active Substance: BACILLUS SUBTILIS\LACTOBACILLUS ACIDOPHILUS\STREPTOCOCCUS FAECAIS
     Indication: GASTROINTESTINAL DISORDER THERAPY
     Dosage: 3 G
     Route: 048
     Dates: start: 20150707
  16. HERBESSER [Suspect]
     Active Substance: DILTIAZEM HYDROCHLORIDE
     Indication: BLOOD PRESSURE MANAGEMENT
     Dosage: 200 MG
     Route: 048
     Dates: start: 20150526

REACTIONS (11)
  - Cardiac arrest [Fatal]
  - Intra-abdominal haemorrhage [Fatal]
  - Haemorrhage [Fatal]
  - Shock haemorrhagic [Unknown]
  - Haemothorax [Fatal]
  - Ileus [Unknown]
  - Myocardial infarction [Fatal]
  - Bradycardia [Fatal]
  - Mechanical ileus [Recovered/Resolved]
  - Liver injury [Unknown]
  - Traumatic lung injury [Unknown]

NARRATIVE: CASE EVENT DATE: 20150523
